FAERS Safety Report 25642411 (Version 1)
Quarter: 2025Q3

REPORT INFORMATION
  Report Type: Spontaneous
  Country: US (occurrence: None)
  Receive Date: 20250805
  Receipt Date: 20250805
  Transmission Date: 20251021
  Serious: No
  Sender: ENCUBE ETHICALS
  Company Number: US-Encube-002094

PATIENT
  Age: 76 Year
  Sex: Female

DRUGS (9)
  1. DICLOFENAC SODIUM [Suspect]
     Active Substance: DICLOFENAC SODIUM
     Indication: Arthropathy
  2. AMLODIPINE [Concomitant]
     Active Substance: AMLODIPINE BESYLATE
     Indication: Blood pressure measurement
  3. LISINOPRIL [Concomitant]
     Active Substance: LISINOPRIL
     Indication: Blood pressure measurement
  4. ATORVASTATIN [Concomitant]
     Active Substance: ATORVASTATIN
     Indication: Blood cholesterol
  5. OXYBUTYNIN [Concomitant]
     Active Substance: OXYBUTYNIN
  6. OMEPRAZOLE [Concomitant]
     Active Substance: OMEPRAZOLE
  7. METHIMAZOLE [Concomitant]
     Active Substance: METHIMAZOLE
  8. GABAPENTIN [Concomitant]
     Active Substance: GABAPENTIN
  9. DICLOFENAC SODIUM [Suspect]
     Active Substance: DICLOFENAC SODIUM
     Indication: Back pain

REACTIONS (6)
  - Paraesthesia [Unknown]
  - Application site rash [Unknown]
  - Application site urticaria [Unknown]
  - Product use in unapproved indication [Unknown]
  - Electric shock sensation [Unknown]
  - Contraindicated product administered [Unknown]

NARRATIVE: CASE EVENT DATE: 20250101
